FAERS Safety Report 6321956-6 (Version None)
Quarter: 2009Q3

REPORT INFORMATION
  Report Type: 
  Country: None (occurrence: None)
  Receive Date: 20090824
  Receipt Date: 20090813
  Transmission Date: 20100115
  Serious: Yes (Other)
  Sender: FDA-Public Use
  Company Number: US-AMGEN-QUU360084

PATIENT
  Sex: Male

DRUGS (8)
  1. NEUPOGEN [Suspect]
     Indication: CHEMOTHERAPY
     Dates: start: 20090805
  2. RITUXAN [Concomitant]
  3. CYTOXAN [Concomitant]
  4. DOXORUBICIN HCL [Concomitant]
  5. VELCADE [Concomitant]
  6. PREDNISONE TAB [Concomitant]
  7. METHOTREXATE [Concomitant]
  8. LEUCOVORIN CALCIUM [Concomitant]

REACTIONS (1)
  - NEUTROPENIA [None]
